FAERS Safety Report 9309658 (Version 1)
Quarter: 2013Q2

REPORT INFORMATION
  Report Type: Spontaneous
  Country: US (occurrence: US)
  Receive Date: 20130525
  Receipt Date: 20130525
  Transmission Date: 20140414
  Serious: No
  Sender: FDA-Public Use
  Company Number: US-BRISTOL-MYERS SQUIBB COMPANY-18586347

PATIENT
  Sex: Male

DRUGS (2)
  1. BYDUREON 2MG VIAL + SYRINGE [Suspect]
     Route: 058
     Dates: end: 201302
  2. INSULIN [Concomitant]
     Indication: PANCREATIC DISORDER

REACTIONS (3)
  - Adverse event [Unknown]
  - Glycosylated haemoglobin increased [Recovered/Resolved]
  - Injection site urticaria [Unknown]
